FAERS Safety Report 6177710-1 (Version None)
Quarter: 2009Q2

REPORT INFORMATION
  Report Type: 
  Country: None (occurrence: None)
  Receive Date: 20090504
  Receipt Date: 20090424
  Transmission Date: 20091009
  Serious: Yes (Other)
  Sender: FDA-Public Use
  Company Number: PHEH2009US04110

PATIENT
  Sex: Female

DRUGS (1)
  1. GLEEVEC [Suspect]
     Dosage: 400 MG, QD
     Dates: start: 20080424

REACTIONS (6)
  - ALOPECIA [None]
  - CONSTIPATION [None]
  - DYSGEUSIA [None]
  - INCREASED TENDENCY TO BRUISE [None]
  - MOUTH HAEMORRHAGE [None]
  - NAUSEA [None]
